FAERS Safety Report 6014857-4 (Version None)
Quarter: 2008Q4

REPORT INFORMATION
  Report Type: 
  Country: None (occurrence: None)
  Receive Date: 20081219
  Receipt Date: 20081215
  Transmission Date: 20090506
  Serious: Yes (Life-Threatening)
  Sender: FDA-Public Use
  Company Number: DE-VALEANT-2008VX002498

PATIENT
  Age: 43 Year
  Sex: Male
  Weight: 85 kg

DRUGS (3)
  1. DALMADORM ^ICN^ [Suspect]
     Route: 065
  2. CITALOPRAM [Suspect]
     Route: 065
  3. TRIMIPRAMINE MALEATE [Suspect]
     Route: 065

REACTIONS (3)
  - COMA [None]
  - MULTIPLE DRUG OVERDOSE INTENTIONAL [None]
  - SUICIDE ATTEMPT [None]
